FAERS Safety Report 24752004 (Version 1)
Quarter: 2024Q4

REPORT INFORMATION
  Report Type: Spontaneous
  Country: US (occurrence: US)
  Receive Date: 20241219
  Receipt Date: 20241219
  Transmission Date: 20250115
  Serious: No
  Sender: PACIRA
  Company Number: US-ORG100016242-2024000120

PATIENT
  Age: 18 Year
  Sex: Female
  Weight: 68 kg

DRUGS (2)
  1. EXPAREL [Suspect]
     Active Substance: BUPIVACAINE
     Indication: Ligament operation
     Route: 050
     Dates: start: 20240405, end: 20240405
  2. LIDOCAINE [Suspect]
     Active Substance: LIDOCAINE
     Indication: Ligament operation
     Route: 050
     Dates: start: 20240405, end: 20240405

REACTIONS (2)
  - Therapeutic response shortened [Unknown]
  - Labelled drug-drug interaction medication error [Unknown]

NARRATIVE: CASE EVENT DATE: 20240405
